FAERS Safety Report 8607151 (Version 2)
Quarter: 2013Q4

REPORT INFORMATION
  Report Type: Spontaneous
  Country: US (occurrence: US)
  Receive Date: 20120611
  Receipt Date: 20131204
  Transmission Date: 20140711
  Serious: No
  Sender: FDA-Public Use
  Company Number: US-ASTRAZENECA-2012SE35205

PATIENT
  Age: 18657 Day
  Sex: Female
  Weight: 72.6 kg

DRUGS (2)
  1. NEXIUM [Suspect]
     Indication: GASTROOESOPHAGEAL REFLUX DISEASE
     Dosage: ONE TIME A DAY
     Route: 048
     Dates: start: 1999
  2. PREVACID [Concomitant]

REACTIONS (4)
  - Osteoporosis [Unknown]
  - Lower limb fracture [Unknown]
  - Gastritis bacterial [Unknown]
  - Gastric disorder [Unknown]
